FAERS Safety Report 17927704 (Version 1)
Quarter: 2020Q2

REPORT INFORMATION
  Report Type: Spontaneous
  Country: DK (occurrence: DK)
  Receive Date: 20200622
  Receipt Date: 20200622
  Transmission Date: 20200714
  Serious: Yes (Disabling)
  Sender: FDA-Public Use
  Company Number: NVSC2020DK174616

PATIENT
  Age: 68 Year
  Sex: Male

DRUGS (6)
  1. PANTOPRAZOLE [Suspect]
     Active Substance: PANTOPRAZOLE
     Indication: DYSPEPSIA
     Dosage: 40 MG
     Route: 048
     Dates: start: 20190529, end: 20191202
  2. HJERDYL [Concomitant]
     Active Substance: ASPIRIN
     Indication: ANTICOAGULANT THERAPY
     Dosage: 75 MG.
     Route: 048
     Dates: start: 20171215
  3. SPIOLTO RESPIMAT [Concomitant]
     Active Substance: OLODATEROL HYDROCHLORIDE\TIOTROPIUM BROMIDE MONOHYDRATE
     Indication: CHRONIC OBSTRUCTIVE PULMONARY DISEASE
     Dosage: 2 DF (2.5 + 2.5 MIKROGRAM), QD
     Route: 055
     Dates: start: 20190529
  4. METOPROLOL HEXAL Z [Concomitant]
     Indication: HYPERTENSION
     Dosage: 50 MG.
     Route: 048
     Dates: start: 20180620
  5. FURIX [Concomitant]
     Indication: DIURETIC THERAPY
     Dosage: DOSIS: 40 MG 1 GANG DAGLIG INDTIL JUNI 2019, DEREFTER 60 MG 1 GANG DAGLIG. STYRKE: 40 MG OG 30 MG.
     Route: 048
     Dates: start: 20181025
  6. AMLODIPIN SANDOZ [Concomitant]
     Indication: HYPERTENSION
     Dosage: 5 MG, QD
     Route: 048
     Dates: start: 20140305

REACTIONS (2)
  - Vitamin B12 deficiency [Recovered/Resolved]
  - Diarrhoea [Recovered/Resolved]

NARRATIVE: CASE EVENT DATE: 2019
